FAERS Safety Report 9652708 (Version 3)
Quarter: 2014Q1

REPORT INFORMATION
  Report Type: Spontaneous
  Country: US (occurrence: US)
  Receive Date: 20131029
  Receipt Date: 20140310
  Transmission Date: 20141002
  Serious: No
  Sender: FDA-Public Use
  Company Number: US-BIOGENIDEC-2013BI077031

PATIENT
  Age: 62 Year
  Sex: Male

DRUGS (9)
  1. TECFIDERA [Suspect]
     Indication: RELAPSING-REMITTING MULTIPLE SCLEROSIS
  2. TECFIDERA [Suspect]
     Indication: RELAPSING-REMITTING MULTIPLE SCLEROSIS
     Route: 048
     Dates: start: 201307
  3. TECFIDERA [Suspect]
     Indication: RELAPSING-REMITTING MULTIPLE SCLEROSIS
     Route: 048
     Dates: start: 20130725
  4. TECFIDERA [Suspect]
     Indication: RELAPSING-REMITTING MULTIPLE SCLEROSIS
     Route: 048
     Dates: start: 20140206
  5. BACLOFEN [Concomitant]
     Route: 048
  6. ALLOPURINOL [Concomitant]
     Route: 048
  7. PANTOPRAZOLE [Concomitant]
     Route: 048
  8. PLAVIX [Concomitant]
     Route: 048
  9. LASIX [Concomitant]
     Route: 048

REACTIONS (7)
  - Fatigue [Not Recovered/Not Resolved]
  - Prescribed underdose [Unknown]
  - Hypersensitivity [Unknown]
  - Adverse event [Unknown]
  - Flushing [Unknown]
  - Pruritus [Recovered/Resolved]
  - Burning sensation [Unknown]
